FAERS Safety Report 8340575-3 (Version None)
Quarter: 2012Q2

REPORT INFORMATION
  Report Type: 
  Country: None (occurrence: None)
  Receive Date: 20120507
  Receipt Date: 20120430
  Transmission Date: 20120825
  Serious: Yes (Death)
  Sender: FDA-Public Use
  Company Number: US-ROCHE-1064064

PATIENT
  Age: 62 Year
  Sex: Male
  Weight: 97 kg

DRUGS (1)
  1. XELODA [Suspect]
     Indication: NEOPLASM
     Route: 048
     Dates: start: 20110728, end: 20110902

REACTIONS (1)
  - SEPTIC SHOCK [None]
